FAERS Safety Report 8595888 (Version 2)
Quarter: 2012Q4

REPORT INFORMATION
  Report Type: 
  Country: JP (occurrence: JP)
  Receive Date: 20120605
  Receipt Date: 20120829
  Transmission Date: 20130627
  Serious: Yes (Hospitalization)
  Sender: FDA-Public Use
  Company Number: JP-GE HEALTHCARE MEDICAL DIAGNOSTICS-MSTR-NO-1205S-0032

PATIENT
  Age: 72 Year
  Sex: Male
  Weight: 61.9 kg

DRUGS (7)
  1. METASTRON [Suspect]
     Indication: METASTATIC PAIN
     Route: 042
     Dates: start: 20120319, end: 20120319
  2. LOXOPROFEN [Concomitant]
  3. URIEF [Concomitant]
  4. GASLON [Concomitant]
  5. NOVORAPID [Concomitant]
  6. ALOSENN [Concomitant]
  7. ADALAT [Concomitant]

REACTIONS (1)
  - Pancytopenia [Not Recovered/Not Resolved]
